FAERS Safety Report 5025217-7 (Version None)
Quarter: 2006Q2

REPORT INFORMATION
  Report Type: 
  Country: None (occurrence: None)
  Receive Date: 20060609
  Receipt Date: 20060609
  Transmission Date: 20061013
  Serious: Yes (Other)
  Sender: FDA-Public Use
  Company Number: None

PATIENT
  Age: 60 Year
  Sex: Female
  Weight: 145.151 kg

DRUGS (2)
  1. FLONASE [Suspect]
     Indication: AGEUSIA
     Dosage: 1 SPRAY TWICE A DAY NASAL
     Dates: start: 20051205, end: 20051231
  2. NASONEX [Suspect]
     Indication: ANOSMIA
     Dates: start: 20060101, end: 20060201

REACTIONS (3)
  - AGEUSIA [None]
  - ANOSMIA [None]
  - NASAL MUCOSAL DISORDER [None]
